FAERS Safety Report 6852824-9 (Version None)
Quarter: 2010Q3

REPORT INFORMATION
  Report Type: 
  Country: None (occurrence: None)
  Receive Date: 20100717
  Receipt Date: 20080118
  Transmission Date: 20110219
  Serious: Yes (Other)
  Sender: FDA-Public Use
  Company Number: US-PFIZER INC-2007098132

PATIENT
  Sex: Female
  Weight: 62.1 kg

DRUGS (5)
  1. CHANTIX [Suspect]
     Indication: SMOKING CESSATION THERAPY
     Dosage: EVERYDAY
     Dates: start: 20070701
  2. EFFEXOR [Concomitant]
     Indication: DEPRESSION
  3. CELEXA [Concomitant]
     Indication: DEPRESSION
  4. PROGESTERONE [Concomitant]
     Indication: MENOPAUSAL SYMPTOMS
  5. TRAZODONE HYDROCHLORIDE [Concomitant]

REACTIONS (3)
  - PSYCHOTIC DISORDER [None]
  - SUICIDAL BEHAVIOUR [None]
  - WEIGHT INCREASED [None]
